FAERS Safety Report 9199129 (Version 1)
Quarter: 2013Q1

REPORT INFORMATION
  Report Type: Spontaneous
  Country: US (occurrence: US)
  Receive Date: 20130329
  Receipt Date: 20130329
  Transmission Date: 20140127
  Serious: No
  Sender: FDA-Public Use
  Company Number: US-009507513-1303USA012556

PATIENT
  Sex: Female

DRUGS (3)
  1. PEGINTRON [Suspect]
  2. VICTRELIS [Suspect]
     Indication: HEPATITIS C
     Dosage: 800 MG, EVERY 7-9 HOURS
     Route: 048
     Dates: start: 20130222
  3. RIBAVIRIN [Suspect]
     Dosage: UNK
     Dates: start: 20130125

REACTIONS (1)
  - Mouth ulceration [Unknown]
